FAERS Safety Report 12994003 (Version 1)
Quarter: 2016Q4

REPORT INFORMATION
  Report Type: Spontaneous
  Country: US (occurrence: US)
  Receive Date: 20161201
  Receipt Date: 20161201
  Transmission Date: 20170207
  Serious: Yes (Life-Threatening)
  Sender: FDA-Public Use
  Company Number: None

PATIENT
  Age: 40 Year
  Sex: Female
  Weight: 76.5 kg

DRUGS (7)
  1. LORZONE [Suspect]
     Active Substance: CHLORZOXAZONE
     Indication: MUSCLE SPASMS
     Dosage: ?          QUANTITY:90 TABLET(S);?
     Route: 048
     Dates: start: 20160930, end: 20161125
  2. METOPROLOL. [Concomitant]
     Active Substance: METOPROLOL
  3. CYMBALTA [Concomitant]
     Active Substance: DULOXETINE HYDROCHLORIDE
  4. SPIRONLACTONE [Concomitant]
  5. LYRICA [Concomitant]
     Active Substance: PREGABALIN
  6. HUMIRA [Concomitant]
     Active Substance: ADALIMUMAB
  7. FISH OIL [Concomitant]
     Active Substance: FISH OIL

REACTIONS (8)
  - Alanine aminotransferase increased [None]
  - Aspartate aminotransferase increased [None]
  - Hepatic failure [None]
  - Gamma-glutamyltransferase increased [None]
  - Idiosyncratic drug reaction [None]
  - Dehydration [None]
  - Gastroenteritis viral [None]
  - Hepatotoxicity [None]

NARRATIVE: CASE EVENT DATE: 20161126
